FAERS Safety Report 7834667 (Version 5)
Quarter: 2012Q4

REPORT INFORMATION
  Report Type: Report from Study
  Country: CA (occurrence: CA)
  Receive Date: 20110301
  Receipt Date: 20121102
  Transmission Date: 20130627
  Serious: Yes (Other)
  Sender: FDA-Public Use
  Company Number: CA-JNJFOC-20110206621

PATIENT
  Age: 57 Year
  Sex: Female
  Weight: 86.55 kg

DRUGS (7)
  1. STELARA [Suspect]
     Indication: PSORIASIS
     Route: 058
     Dates: start: 20101215
  2. STELARA [Suspect]
     Indication: PSORIASIS
     Route: 058
     Dates: start: 200906
  3. ELTROXIN [Concomitant]
  4. METFORMIN [Concomitant]
  5. CRESTOR [Concomitant]
  6. HYDROCHLOROTHIAZIDE [Concomitant]
  7. ATACAND [Concomitant]

REACTIONS (1)
  - Iron deficiency anaemia [Recovered/Resolved]
